FAERS Safety Report 12811081 (Version 2)
Quarter: 2016Q4

REPORT INFORMATION
  Report Type: Spontaneous
  Country: BR (occurrence: BR)
  Receive Date: 20161005
  Receipt Date: 20161103
  Transmission Date: 20170207
  Serious: Yes (Other)
  Sender: FDA-Public Use
  Company Number: PHHY2016BR133431

PATIENT
  Sex: Female
  Weight: 54 kg

DRUGS (2)
  1. PANTOPRAZOL [Suspect]
     Active Substance: PANTOPRAZOLE SODIUM
     Indication: GASTRITIS
     Dosage: 1 DF, QD
     Route: 048
  2. PANTOPRAZOL [Suspect]
     Active Substance: PANTOPRAZOLE SODIUM
     Indication: HELICOBACTER GASTRITIS

REACTIONS (7)
  - Arthralgia [Recovered/Resolved]
  - Nervous system disorder [Recovered/Resolved]
  - Arthritis [Recovered/Resolved]
  - Joint swelling [Recovered/Resolved]
  - Movement disorder [Recovered/Resolved]
  - Depression [Recovered/Resolved]
  - Blood pressure increased [Recovered/Resolved]
